FAERS Safety Report 17783712 (Version 1)
Quarter: 2020Q2

REPORT INFORMATION
  Report Type: Spontaneous
  Country: DK (occurrence: DK)
  Receive Date: 20200513
  Receipt Date: 20200513
  Transmission Date: 20200714
  Serious: Yes (Death, Hospitalization, Other)
  Sender: FDA-Public Use
  Company Number: DK-BRISTOL-MYERS SQUIBB COMPANY-BMS-2020-037290

PATIENT
  Age: 94 Year
  Sex: Female

DRUGS (11)
  1. BRICANYL [Concomitant]
     Active Substance: TERBUTALINE SULFATE
     Indication: BRONCHOSPASM
     Dosage: 0.5 MILLIGRAM, PRN
     Route: 055
     Dates: start: 20191224
  2. OXYCODONE [Concomitant]
     Active Substance: OXYCODONE
     Indication: PAIN
     Dosage: UNK
     Route: 048
     Dates: start: 20191224
  3. SPIROCORT [Concomitant]
     Active Substance: BUDESONIDE
     Indication: ASTHMA
     Dosage: 400 MICROGRAM, QD
     Route: 055
     Dates: start: 20110908
  4. PANODIL [Concomitant]
     Active Substance: ACETAMINOPHEN
     Indication: PAIN
     Dosage: 3000 MILLIGRAM
     Route: 048
     Dates: start: 20191224
  5. ELIQUIS [Suspect]
     Active Substance: APIXABAN
     Indication: THROMBOSIS PROPHYLAXIS
     Dosage: 5 MILLIGRAM DAILY
     Route: 048
     Dates: start: 20191224
  6. MIRTAZAPIN [Concomitant]
     Active Substance: MIRTAZAPINE
     Indication: DEPRESSION
     Dosage: 15 MILLIGRAM, QD
     Route: 048
     Dates: start: 20181214
  7. SERTRALIN [SERTRALINE HYDROCHLORIDE] [Concomitant]
     Indication: DEPRESSION
     Dosage: 50 MILLIGRAM, QD
     Route: 048
     Dates: start: 20191225
  8. KININ [QUININE HYDROCHLORIDE] [Concomitant]
     Indication: MUSCLE SPASMS
     Dosage: 200 MILLIGRAM, QD
     Route: 048
     Dates: start: 20191224
  9. FURIX [FUROSEMIDE] [Concomitant]
     Active Substance: FUROSEMIDE
     Indication: DIURETIC THERAPY
     Dosage: 40 MILLIGRAM, QD
     Route: 048
     Dates: start: 20171108
  10. TEMESTA [LORAZEPAM] [Concomitant]
     Active Substance: LORAZEPAM
     Indication: SEDATIVE THERAPY
     Dosage: 1.5 MILLIGRAM, QD
     Route: 048
     Dates: start: 20191224
  11. PRAMIPEXOL 1A PHARMA [Concomitant]
     Indication: RESTLESS LEGS SYNDROME
     Dosage: 0.18 MILLIGRAM, QD
     Route: 048
     Dates: start: 20191224

REACTIONS (3)
  - Coma [Fatal]
  - Cerebral haemorrhage [Fatal]
  - Intraventricular haemorrhage [Fatal]

NARRATIVE: CASE EVENT DATE: 20200501
